APPROVED DRUG PRODUCT: COLYTE
Active Ingredient: POLYETHYLENE GLYCOL 3350; POTASSIUM CHLORIDE; SODIUM BICARBONATE; SODIUM CHLORIDE; SODIUM SULFATE ANHYDROUS
Strength: 120GM/PACKET;1.49GM/PACKET;3.36GM/PACKET;2.92GM/PACKET;11.36GM/PACKET **Federal Register determination that product was not discontinued or withdrawn for safety or effectiveness reasons**
Dosage Form/Route: FOR SOLUTION;ORAL
Application: N018983 | Product #005
Applicant: QUAGEN PHARMACEUTICALS LLC
Approved: Oct 26, 1984 | RLD: No | RS: No | Type: DISCN